FAERS Safety Report 5011237-5 (Version None)
Quarter: 2006Q2

REPORT INFORMATION
  Report Type: 
  Country: None (occurrence: None)
  Receive Date: 20060523
  Receipt Date: 20060511
  Transmission Date: 20061013
  Serious: Yes (Hospitalization)
  Sender: FDA-Public Use
  Company Number: 2006-01134

PATIENT
  Age: 68 Year
  Sex: Female

DRUGS (14)
  1. VELCADE [Suspect]
     Indication: OVARIAN CANCER
     Dosage: 1.30 MG/M2, INTRAVENOUS
     Route: 042
     Dates: start: 20060419, end: 20060426
  2. CARBOPLATIN [Suspect]
     Indication: OVARIAN CANCER
     Dosage: 270.00 MG, INTRAVENOUS
     Route: 042
     Dates: start: 20060419
  3. PROTONIX [Concomitant]
  4. LOVENOX [Concomitant]
  5. NORVASC [Concomitant]
  6. TOPROL-XL [Concomitant]
  7. LASIX [Concomitant]
  8. SPIRONOLACTONE [Concomitant]
  9. MULTIPLE VITAMINS (ERGOCALCIFEROL, VITAMIN B NOS, TOCOPHEROL, ASCORBIC [Concomitant]
  10. VITAMIN B6 [Concomitant]
  11. MAGNESIUM (MAGNESIUM) [Concomitant]
  12. SENOKOT [Concomitant]
  13. LORTAB [Concomitant]
  14. ZOFRAN [Concomitant]

REACTIONS (6)
  - ASTHENIA [None]
  - DIARRHOEA [None]
  - FAILURE TO THRIVE [None]
  - FATIGUE [None]
  - HYPOMAGNESAEMIA [None]
  - HYPONATRAEMIA [None]
